FAERS Safety Report 7347117-X (Version None)
Quarter: 2011Q1

REPORT INFORMATION
  Report Type: 
  Country: None (occurrence: None)
  Receive Date: 20110311
  Receipt Date: 20110303
  Transmission Date: 20110831
  Serious: Yes (Other)
  Sender: FDA-Public Use
  Company Number: CA-NOVOPROD-321459

PATIENT
  Age: 69 Year

DRUGS (11)
  1. OMEPRAZOLE [Concomitant]
     Dosage: 20 MG, QD
  2. VICTOZA [Suspect]
     Dosage: 1.8 MG, QD
     Route: 065
     Dates: start: 20101203
  3. GLUCONORM [Concomitant]
     Dosage: 1 MG, TID
     Dates: start: 20110101
  4. METFORMIN [Concomitant]
     Dosage: 850 TID
  5. ATORVASTATIN [Concomitant]
     Dosage: 80/DAY
  6. SERTRALIN                          /01011401/ [Concomitant]
     Dosage: 50 / DAY
     Dates: start: 20110101
  7. VICTOZA [Suspect]
     Indication: TYPE 2 DIABETES MELLITUS
     Dosage: 0.6 MG, QD
     Route: 065
     Dates: start: 20101112
  8. VICTOZA [Suspect]
     Dosage: 1.2 MG, QD
     Route: 065
     Dates: start: 20101122
  9. AAS [Concomitant]
     Dosage: 80 / DAY
     Dates: start: 20110101
  10. DIOVAN [Concomitant]
     Dosage: 160 / DAY
  11. BISOPROLOL FUMARATE [Concomitant]
     Dosage: 5 MG, QD

REACTIONS (1)
  - MYOCARDIAL INFARCTION [None]
